FAERS Safety Report 6757604-0 (Version None)
Quarter: 2010Q2

REPORT INFORMATION
  Report Type: 
  Country: None (occurrence: None)
  Receive Date: 20100607
  Receipt Date: 20100601
  Transmission Date: 20101027
  Serious: Yes (Death, Life-Threatening)
  Sender: FDA-Public Use
  Company Number: IE-JNJFOC-20100303423

PATIENT
  Sex: Female

DRUGS (6)
  1. CAELYX [Suspect]
     Indication: BREAST CANCER METASTATIC
     Dosage: 60.88 MG EVERY 28 DAYS
     Route: 042
  2. TRAMADOL HCL [Concomitant]
     Route: 065
  3. LACTULOSE [Concomitant]
  4. ALPRAZOLAM [Concomitant]
     Route: 065
  5. LANSOPRAZOLE [Concomitant]
     Route: 065
  6. DOMPERIDONE [Concomitant]
     Route: 065

REACTIONS (1)
  - NEUTROPENIC SEPSIS [None]
